FAERS Safety Report 17014848 (Version 1)
Quarter: 2019Q4

REPORT INFORMATION
  Report Type: Spontaneous
  Country: US (occurrence: US)
  Receive Date: 20191108
  Receipt Date: 20191108
  Transmission Date: 20200122
  Serious: Yes (Disabling)
  Sender: FDA-Public Use
  Company Number: None

PATIENT
  Age: 34 Year
  Weight: 121.5 kg

DRUGS (10)
  1. LABEDALOL [Concomitant]
  2. FISH OIL [Concomitant]
     Active Substance: FISH OIL
  3. THORAZINE [Concomitant]
     Active Substance: CHLORPROMAZINE
  4. VITAMIN C [Concomitant]
     Active Substance: ASCORBIC ACID
  5. PROBIOTICS [Concomitant]
     Active Substance: PROBIOTICS NOS
  6. PRENATAL VITAMIN [Concomitant]
     Active Substance: VITAMINS
  7. VITAMIN D3 [Concomitant]
     Active Substance: CHOLECALCIFEROL
  8. 5 HTP [Concomitant]
  9. KLONOPIN [Suspect]
     Active Substance: CLONAZEPAM
     Indication: ANXIETY
     Dosage: ?          QUANTITY:1 TABLET(S);?
     Route: 048
     Dates: start: 20080201, end: 20190604
  10. HAIR AND NAIL VITAMIN [Concomitant]

REACTIONS (17)
  - Irritability [None]
  - Depersonalisation/derealisation disorder [None]
  - Withdrawal syndrome [None]
  - Headache [None]
  - Amnesia [None]
  - Dizziness [None]
  - Nightmare [None]
  - Anhedonia [None]
  - Vision blurred [None]
  - Fatigue [None]
  - Disturbance in attention [None]
  - Coordination abnormal [None]
  - Confusional state [None]
  - Derealisation [None]
  - Motor dysfunction [None]
  - Apathy [None]
  - Panic reaction [None]

NARRATIVE: CASE EVENT DATE: 20190604
